FAERS Safety Report 10658766 (Version 1)
Quarter: 2014Q4

REPORT INFORMATION
  Report Type: Spontaneous
  Country: FR (occurrence: FR)
  Receive Date: 20141217
  Receipt Date: 20141217
  Transmission Date: 20150529
  Serious: Yes (Death, Hospitalization)
  Sender: FDA-Public Use
  Company Number: FR-CELGENE-FRA-2014123019

PATIENT

DRUGS (2)
  1. REVLIMID [Suspect]
     Active Substance: LENALIDOMIDE
     Indication: ACUTE LYMPHOCYTIC LEUKAEMIA RECURRENT
     Dosage: 25 MILLIGRAM
     Route: 048
     Dates: start: 201002, end: 201308
  2. DEXAMETHASONE. [Concomitant]
     Active Substance: DEXAMETHASONE
     Indication: ACUTE LYMPHOCYTIC LEUKAEMIA RECURRENT
     Route: 048
     Dates: start: 201002, end: 201308

REACTIONS (7)
  - Bacteraemia [Unknown]
  - Neutropenia [Unknown]
  - Listeriosis [Unknown]
  - Pneumococcal bacteraemia [Unknown]
  - Acute lymphocytic leukaemia recurrent [Fatal]
  - Pneumonia [Unknown]
  - Thrombocytopenia [Unknown]
